FAERS Safety Report 22972537 (Version 3)
Quarter: 2023Q4

REPORT INFORMATION
  Report Type: Spontaneous
  Country: BR (occurrence: BR)
  Receive Date: 20230922
  Receipt Date: 20231107
  Transmission Date: 20240110
  Serious: Yes (Hospitalization, Other)
  Sender: FDA-Public Use
  Company Number: BR-ORGANON-O2309BRA002024

PATIENT
  Sex: Female
  Weight: 65 kg

DRUGS (13)
  1. VYTORIN [Suspect]
     Active Substance: EZETIMIBE\SIMVASTATIN
     Indication: Blood cholesterol
     Dosage: UNK
     Route: 048
     Dates: start: 2015
  2. VYTORIN [Suspect]
     Active Substance: EZETIMIBE\SIMVASTATIN
     Dosage: UNK
     Route: 048
  3. EZETIMIBE\SIMVASTATIN [Suspect]
     Active Substance: EZETIMIBE\SIMVASTATIN
     Indication: Blood cholesterol
     Dosage: ONE EVERY ALTERNATE DAY
  4. EXODUS [ESCITALOPRAM OXALATE] [Concomitant]
     Indication: Depression
     Dosage: 1 TABLET AT NIGHT
     Route: 048
  5. EXODUS [ESCITALOPRAM OXALATE] [Concomitant]
     Dosage: HALF A PILL
     Route: 048
  6. LUVIS [GLYCEROL;PROPYLENE GLYCOL] [Concomitant]
     Indication: Macular degeneration
     Dosage: 1 CAPSULE A DAY
     Route: 048
  7. LUVIS [GLYCEROL;PROPYLENE GLYCOL] [Concomitant]
     Indication: Vitamin supplementation
  8. CLOPIN [CLOPIDOGREL BESYLATE] [Concomitant]
     Indication: Anticoagulant therapy
     Dosage: PREVIOUSLY ON 100 MG OR SO
     Route: 048
  9. CLOPIN [CLOPIDOGREL BESYLATE] [Concomitant]
     Dosage: 75 MG, 1 TABLET DURING LUNCH
     Route: 048
  10. VITAMIN D3 [Concomitant]
     Active Substance: CHOLECALCIFEROL
     Indication: Hypovitaminosis
     Dosage: 7000, ONCE A WEEK
  11. LORAZEPAM [Concomitant]
     Active Substance: LORAZEPAM
     Indication: Insomnia
     Dosage: 1 MILLIGRAM AT NIGHT
     Route: 048
  12. LORAZEPAM [Concomitant]
     Active Substance: LORAZEPAM
     Dosage: 1 MG TABLET DIVIDED INTO 4 PIECES
     Route: 048
  13. RESTITUE [Concomitant]
     Dosage: UNK

REACTIONS (5)
  - Cerebrovascular accident [Recovered/Resolved]
  - Macular degeneration [Recovering/Resolving]
  - Discomfort [Not Recovered/Not Resolved]
  - Pain in extremity [Recovered/Resolved]
  - Product lot number issue [Unknown]

NARRATIVE: CASE EVENT DATE: 20200101
